FAERS Safety Report 16685921 (Version 1)
Quarter: 2019Q3

REPORT INFORMATION
  Report Type: Spontaneous
  Country: DE (occurrence: DE)
  Receive Date: 20190809
  Receipt Date: 20190809
  Transmission Date: 20191004
  Serious: Yes (Hospitalization)
  Sender: FDA-Public Use
  Company Number: DE-AUROBINDO-AUR-APL-2019-052527

PATIENT

DRUGS (2)
  1. QUETIAPINE. [Suspect]
     Active Substance: QUETIAPINE
     Indication: POSTOPERATIVE DELIRIUM
     Dosage: 50MG DAILY; 0-0-1, DOSE REDUCED BY 50% IN THE FIRST WEEK
     Route: 065
  2. MELPERONE [Suspect]
     Active Substance: MELPERONE
     Indication: POSTOPERATIVE DELIRIUM
     Dosage: 10MG DAILY; 0-0-1, DOSE REDUCED BY 50% IN THE FIRST WEEK
     Route: 065

REACTIONS (3)
  - Somnolence [Recovered/Resolved]
  - Overdose [Recovered/Resolved]
  - Cognitive disorder [Recovered/Resolved]
